FAERS Safety Report 26171585 (Version 1)
Quarter: 2025Q4

REPORT INFORMATION
  Report Type: Spontaneous
  Country: US (occurrence: US)
  Receive Date: 20251217
  Receipt Date: 20251217
  Transmission Date: 20260118
  Serious: No
  Sender: GALPHARM INTERNATIONAL
  Company Number: US-PERRIGO-25US011997

PATIENT
  Age: 75 Year
  Sex: Male
  Weight: 72.562 kg

DRUGS (8)
  1. GUAIFENESIN [Suspect]
     Active Substance: GUAIFENESIN
     Indication: Cough
     Dosage: 600 MG, SINGLE
     Route: 048
     Dates: start: 20251001, end: 20251001
  2. GUAIFENESIN [Suspect]
     Active Substance: GUAIFENESIN
     Dosage: 600 MG, BID
     Route: 048
     Dates: start: 20251002, end: 20251003
  3. GUAIFENESIN [Suspect]
     Active Substance: GUAIFENESIN
     Dosage: 600 MG, QD
     Route: 048
     Dates: start: 20251004, end: 20251005
  4. IPRATROPIUM BROMIDE [Suspect]
     Active Substance: IPRATROPIUM BROMIDE
     Indication: Nasal congestion
     Dosage: 2 SPRAYS, BID TO TID
     Route: 045
     Dates: start: 20251001, end: 20251004
  5. FLUTICASONE [Suspect]
     Active Substance: FLUTICASONE
     Indication: Nasal congestion
     Dosage: 2 SPRAYS, QD
     Route: 045
     Dates: start: 20250924, end: 20251004
  6. TRAZODONE [Concomitant]
     Active Substance: TRAZODONE HYDROCHLORIDE
     Indication: Insomnia
     Dosage: UNK
     Route: 065
     Dates: start: 20251001
  7. CLONIDINE [Concomitant]
     Active Substance: CLONIDINE
     Indication: Hypertension
     Dosage: UNKNOWN, BID
     Route: 065
     Dates: start: 20250929
  8. FAMOTIDINE [Concomitant]
     Active Substance: FAMOTIDINE
     Indication: Gastrooesophageal reflux disease
     Dosage: UNK
     Route: 065
     Dates: start: 20250929

REACTIONS (2)
  - Epistaxis [Recovered/Resolved]
  - Drug ineffective [Unknown]

NARRATIVE: CASE EVENT DATE: 20251001
